FAERS Safety Report 7688480-X (Version None)
Quarter: 2011Q3

REPORT INFORMATION
  Report Type: 
  Country: None (occurrence: None)
  Receive Date: 20110817
  Receipt Date: 20110810
  Transmission Date: 20111222
  Serious: Yes (Hospitalization)
  Sender: FDA-Public Use
  Company Number: BR-SANOFI-AVENTIS-2011SA004037

PATIENT
  Sex: Female
  Weight: 49 kg

DRUGS (5)
  1. APIDRA [Suspect]
     Dosage: ACCORDING TO GLYCEMIA
     Route: 058
     Dates: start: 20070101
  2. LANTUS [Suspect]
     Route: 058
     Dates: start: 20070101
  3. LANTUS [Suspect]
     Dosage: LANTUS IS ONGOING; CASE HAS A FATAL OUTCOME (FETAL DEATH);END DATES FOR LANTUS HAD TO BE POPULATED.
     Route: 058
  4. LANTUS [Suspect]
     Route: 058
     Dates: start: 20100101
  5. LEVOTHYROXINE SODIUM [Suspect]

REACTIONS (3)
  - DIABETES MELLITUS INADEQUATE CONTROL [None]
  - INTRA-UTERINE DEATH [None]
  - MATERNAL EXPOSURE DURING PREGNANCY [None]
